FAERS Safety Report 8509556-0 (Version None)
Quarter: 2012Q3

REPORT INFORMATION
  Report Type: 
  Country: None (occurrence: None)
  Receive Date: 20120713
  Receipt Date: 20120711
  Transmission Date: 20120928
  Serious: Yes (Disabling, Other)
  Sender: FDA-Public Use
  Company Number: PHHY2007JP00680

PATIENT
  Sex: Female

DRUGS (12)
  1. IMATINIB MESYLATE [Suspect]
     Indication: CHRONIC MYELOID LEUKAEMIA
     Dosage: 200 MG, DAILY
     Route: 048
     Dates: start: 20031014, end: 20031224
  2. IMATINIB MESYLATE [Suspect]
     Dosage: 200 MG, DAILY
     Route: 048
     Dates: start: 20040511, end: 20070515
  3. DORNER [Concomitant]
     Dosage: 120 UG, QD
     Dates: start: 20071107
  4. LASIX [Concomitant]
     Dosage: 20 MG, QD
  5. LASIX [Concomitant]
     Dosage: 40 MG, QD
     Dates: start: 20071024
  6. IMATINIB MESYLATE [Suspect]
     Dosage: 100 MG, DAILY
     Route: 048
     Dates: start: 20031225, end: 20040425
  7. IMATINIB MESYLATE [Suspect]
     Dosage: 300 MG, DAILY
     Route: 048
     Dates: start: 20070516, end: 20070524
  8. IMATINIB MESYLATE [Suspect]
     Dosage: 300 MG, DAILY
     Route: 048
     Dates: start: 20080522
  9. IMATINIB MESYLATE [Suspect]
     Dosage: 300 MG, DAILY
     Route: 048
     Dates: start: 20070525
  10. DIOVAN [Concomitant]
     Indication: BLOOD PRESSURE INCREASED
     Dosage: 40 MG, QD
     Dates: start: 20070912
  11. IMATINIB MESYLATE [Suspect]
     Dosage: 200 MG, DAILY
     Route: 048
     Dates: start: 20040426, end: 20040510
  12. DORNER [Concomitant]
     Indication: PULMONARY HYPERTENSION
     Dosage: 60 UG, QD
     Dates: start: 20070926

REACTIONS (15)
  - RIGHT VENTRICULAR FAILURE [None]
  - PLEURAL EFFUSION [None]
  - DILATATION VENTRICULAR [None]
  - HAEMATOCRIT DECREASED [None]
  - PULMONARY HYPERTENSION [None]
  - RED BLOOD CELL COUNT DECREASED [None]
  - PERICARDIAL EFFUSION [None]
  - FLUID RETENTION [None]
  - OEDEMA [None]
  - HAEMOGLOBIN DECREASED [None]
  - HYPOVENTILATION [None]
  - CARDIAC HYPERTROPHY [None]
  - BRAIN NATRIURETIC PEPTIDE INCREASED [None]
  - FALL [None]
  - CARDIOTHORACIC RATIO INCREASED [None]
